FAERS Safety Report 9634428 (Version 1)
Quarter: 2013Q4

REPORT INFORMATION
  Report Type: Spontaneous
  Country: AU (occurrence: None)
  Receive Date: 20131017
  Receipt Date: 20131017
  Transmission Date: 20140711
  Serious: Yes (Disabling)
  Sender: FDA-Public Use
  Company Number: 2013AP008844

PATIENT
  Age: 58 Year
  Sex: Female

DRUGS (2)
  1. SIMVASTATIN (SIMVASTATIN) [Suspect]
  2. GEMFIBROZIL (GEMFIBROZIL) [Suspect]

REACTIONS (3)
  - Rhabdomyolysis [None]
  - Drug interaction [None]
  - Renal failure acute [None]
